FAERS Safety Report 4752317-9 (Version None)
Quarter: 2005Q3

REPORT INFORMATION
  Report Type: 
  Country: None (occurrence: None)
  Receive Date: 20050825
  Receipt Date: 20010718
  Transmission Date: 20060218
  Serious: Yes (Hospitalization)
  Sender: FDA-Public Use
  Company Number: FR-GLAXOSMITHKLINE-B0114945A

PATIENT
  Sex: Female
  Weight: 3.1 kg

DRUGS (3)
  1. ZIDOVUDINE [Suspect]
     Indication: ANTIVIRAL PROPHYLAXIS
     Route: 048
     Dates: start: 20000413, end: 20000526
  2. ZIDOVUDINE [Suspect]
     Dates: start: 20000413, end: 20000413
  3. ZIDOVUDINE [Suspect]
     Indication: HIV INFECTION
     Dosage: 600MG PER DAY

REACTIONS (17)
  - ABDOMINAL DISTENSION [None]
  - BLOOD CREATINE PHOSPHOKINASE INCREASED [None]
  - BLOOD LACTATE DEHYDROGENASE INCREASED [None]
  - BLOOD LACTIC ACID INCREASED [None]
  - BLOOD PYRUVIC ACID DECREASED [None]
  - CANDIDIASIS [None]
  - DRUG EXPOSURE DURING PREGNANCY [None]
  - ECZEMA [None]
  - ENLARGED CLITORIS [None]
  - FUNGAL INFECTION [None]
  - HYPERKALAEMIA [None]
  - MACROCYTOSIS [None]
  - METABOLIC DISORDER [None]
  - NEUTROPENIA [None]
  - REGURGITATION OF FOOD [None]
  - TREMOR [None]
  - UMBILICAL HERNIA [None]
